FAERS Safety Report 25031811 (Version 1)
Quarter: 2025Q1

REPORT INFORMATION
  Report Type: Spontaneous
  Country: ES (occurrence: ES)
  Receive Date: 20250303
  Receipt Date: 20250303
  Transmission Date: 20250409
  Serious: Yes (Other)
  Sender: NOVARTIS
  Company Number: None

PATIENT
  Age: 78 Year
  Sex: Female

DRUGS (6)
  1. LAPATINIB [Suspect]
     Active Substance: LAPATINIB
     Indication: Invasive ductal breast carcinoma
     Route: 065
     Dates: start: 201202
  2. CAPECITABINE [Suspect]
     Active Substance: CAPECITABINE
     Indication: Invasive ductal breast carcinoma
     Route: 048
     Dates: start: 201202
  3. TAMOXIFEN [Suspect]
     Active Substance: TAMOXIFEN
     Indication: Invasive ductal breast carcinoma
     Route: 065
  4. HERCEPTIN [Suspect]
     Active Substance: TRASTUZUMAB
     Indication: Product used for unknown indication
     Route: 065
     Dates: start: 201207
  5. FASLODEX [Suspect]
     Active Substance: FULVESTRANT
     Indication: Invasive ductal breast carcinoma
     Route: 065
  6. EXEMESTANE [Suspect]
     Active Substance: EXEMESTANE
     Indication: Invasive ductal breast carcinoma
     Route: 065
     Dates: start: 201207

REACTIONS (4)
  - Jaundice cholestatic [Unknown]
  - Liver disorder [Unknown]
  - Palmar-plantar erythrodysaesthesia syndrome [Unknown]
  - Diarrhoea [Unknown]
